FAERS Safety Report 22234911 (Version 2)
Quarter: 2023Q2

REPORT INFORMATION
  Report Type: Report from Study
  Country: TR (occurrence: TR)
  Receive Date: 20230420
  Receipt Date: 20230515
  Transmission Date: 20230722
  Serious: Yes (Hospitalization)
  Sender: FDA-Public Use
  Company Number: TR-JNJFOC-20230428375

PATIENT
  Age: 57 Year
  Sex: Female
  Weight: 65 kg

DRUGS (18)
  1. DARATUMUMAB [Suspect]
     Active Substance: DARATUMUMAB
     Indication: Plasma cell myeloma
     Route: 058
     Dates: start: 20230227, end: 20230327
  2. AMLODIPINE [Concomitant]
     Active Substance: AMLODIPINE BESYLATE
     Indication: Hypertension
     Route: 048
     Dates: start: 19880101
  3. LEVOTHYROXINE SODIUM [Concomitant]
     Active Substance: LEVOTHYROXINE SODIUM
     Indication: Thyroid therapy
     Route: 048
     Dates: start: 20080101
  4. ALLOPURINOL [Concomitant]
     Active Substance: ALLOPURINOL
     Indication: Blood uric acid decreased
     Route: 048
     Dates: start: 20230227
  5. LANSOPRAZOLE [Concomitant]
     Active Substance: LANSOPRAZOLE
     Indication: Gastrointestinal disorder therapy
     Route: 048
     Dates: start: 20230227
  6. SULFAMETHOXAZOLE\TRIMETHOPRIM [Concomitant]
     Active Substance: SULFAMETHOXAZOLE\TRIMETHOPRIM
     Indication: Infection prophylaxis
     Dosage: 800/160
     Route: 048
     Dates: start: 20230227
  7. VALACYCLOVIR [Concomitant]
     Active Substance: VALACYCLOVIR HYDROCHLORIDE
     Indication: Antiviral prophylaxis
     Route: 048
     Dates: start: 20230227
  8. ENOXAPARIN SODIUM [Concomitant]
     Active Substance: ENOXAPARIN SODIUM
     Indication: Fibrin D dimer increased
     Route: 058
     Dates: start: 20230322
  9. TOCILIZUMAB [Concomitant]
     Active Substance: TOCILIZUMAB
     Indication: Pyrexia
     Route: 042
     Dates: start: 20230330, end: 20230330
  10. COSMETICS [Concomitant]
     Active Substance: COSMETICS
     Indication: Skin exfoliation
     Route: 061
     Dates: start: 20230403
  11. MOMESALIC [Concomitant]
     Indication: Skin exfoliation
     Route: 061
     Dates: start: 20230405
  12. MOMESALIC [Concomitant]
     Indication: Onychomadesis
  13. METHYLPREDNISOLONE ACEPONATE [Concomitant]
     Active Substance: METHYLPREDNISOLONE ACEPONATE
     Indication: Skin exfoliation
     Route: 061
     Dates: start: 20230406
  14. METHYLPREDNISOLONE ACEPONATE [Concomitant]
     Active Substance: METHYLPREDNISOLONE ACEPONATE
     Indication: Onychomadesis
  15. MOMECON [Concomitant]
     Indication: Skin exfoliation
     Route: 061
     Dates: start: 20230406
  16. MOMECON [Concomitant]
     Indication: Onychomadesis
  17. ZYRTEC [Concomitant]
     Active Substance: CETIRIZINE HYDROCHLORIDE
     Indication: Skin exfoliation
     Route: 048
     Dates: start: 20230406
  18. ZYRTEC [Concomitant]
     Active Substance: CETIRIZINE HYDROCHLORIDE
     Indication: Onychomadesis

REACTIONS (1)
  - Cytomegalovirus infection reactivation [Recovered/Resolved]

NARRATIVE: CASE EVENT DATE: 20230413
